FAERS Safety Report 7029270-0 (Version None)
Quarter: 2010Q3

REPORT INFORMATION
  Report Type: 
  Country: None (occurrence: None)
  Receive Date: 20100924
  Receipt Date: 20100112
  Transmission Date: 20110219
  Serious: Yes (Other)
  Sender: FDA-Public Use
  Company Number: WAES 1001USA01037

PATIENT
  Sex: Male

DRUGS (1)
  1. VYTORIN [Suspect]
     Dosage: PO
     Route: 048

REACTIONS (5)
  - ASTHENIA [None]
  - BLOOD CREATINE PHOSPHOKINASE INCREASED [None]
  - MONOCLONAL GAMMOPATHY [None]
  - MYALGIA [None]
  - POLYNEUROPATHY [None]
